FAERS Safety Report 22088477 (Version 3)
Quarter: 2023Q2

REPORT INFORMATION
  Report Type: Spontaneous
  Country: GB (occurrence: GB)
  Receive Date: 20230313
  Receipt Date: 20230401
  Transmission Date: 20230722
  Serious: Yes (Life-Threatening, Hospitalization, Other)
  Sender: FDA-Public Use
  Company Number: GB-Accord-304108

PATIENT
  Age: 80 Year
  Sex: Male

DRUGS (15)
  1. ALLOPURINOL [Suspect]
     Active Substance: ALLOPURINOL
     Indication: Gout
     Route: 048
     Dates: start: 202008
  2. EPLERENONE [Suspect]
     Active Substance: EPLERENONE
     Indication: Product used for unknown indication
  3. FUROSEMIDE [Suspect]
     Active Substance: FUROSEMIDE
     Indication: Cardiac failure
     Dosage: SUSPENDED ON 05-SEP-2022
     Route: 048
     Dates: start: 2017, end: 20220905
  4. RAMIPRIL [Suspect]
     Active Substance: RAMIPRIL
     Indication: Coronary artery disease
     Dosage: DAILY
     Route: 048
     Dates: start: 202008, end: 20210906
  5. SOTALOL [Concomitant]
     Active Substance: SOTALOL
     Indication: Atrial fibrillation
     Route: 048
     Dates: start: 202008
  6. LEVOTHYROXINE [Concomitant]
     Active Substance: LEVOTHYROXINE
     Indication: Hypothyroidism
     Route: 048
     Dates: start: 2017
  7. EDOXABAN [Concomitant]
     Active Substance: EDOXABAN
     Indication: Atrial fibrillation
     Route: 048
     Dates: start: 202008
  8. LOPERAMIDE [Concomitant]
     Active Substance: LOPERAMIDE
     Indication: Diarrhoea
     Route: 048
     Dates: start: 2021
  9. ATORVASTATIN [Concomitant]
     Active Substance: ATORVASTATIN
     Indication: Hypercholesterolaemia
     Route: 048
     Dates: start: 2012
  10. COVID-19 VACCINE [Concomitant]
     Dosage: DOSE 1, SINGLE
     Dates: start: 20210117, end: 20210117
  11. ENOXAPARIN [Concomitant]
     Active Substance: ENOXAPARIN
     Dosage: 120 MILLIGRAM, QD
     Route: 048
  12. METRONIDAZOLE [Concomitant]
     Active Substance: METRONIDAZOLE
     Indication: Helicobacter infection
     Dosage: 400 MILLIGRAM, BID (400 MG BID (FOR 7 DAYS)
  13. TAMSULOSIN [Concomitant]
     Active Substance: TAMSULOSIN
     Indication: Benign prostatic hyperplasia
     Dosage: 400 MICROGRAM, QD
     Route: 048
  14. ALLOPURINOL [Suspect]
     Active Substance: ALLOPURINOL
     Indication: Gout
     Dosage: 100 MILLIGRAM, QD
     Route: 048
     Dates: start: 2020
  15. COVID-19 VACCINE [Concomitant]
     Dosage: DOSE 2, SINGLE
     Dates: start: 20210402, end: 20210402

REACTIONS (8)
  - Urosepsis [Recovered/Resolved with Sequelae]
  - Ileus [Recovered/Resolved]
  - Small intestinal obstruction [Recovered/Resolved with Sequelae]
  - Cardiac amyloidosis [Unknown]
  - Acute kidney injury [Recovered/Resolved]
  - Thrombosis [Unknown]
  - Helicobacter infection [Unknown]
  - Benign prostatic hyperplasia [Unknown]

NARRATIVE: CASE EVENT DATE: 20180228
